FAERS Safety Report 14764793 (Version 1)
Quarter: 2018Q2

REPORT INFORMATION
  Report Type: Spontaneous
  Country: GR (occurrence: GR)
  Receive Date: 20180416
  Receipt Date: 20180416
  Transmission Date: 20180711
  Serious: Yes (Other)
  Sender: FDA-Public Use
  Company Number: GR-TEVA-2018-GR-882415

PATIENT
  Age: 63 Year
  Sex: Female
  Weight: 70 kg

DRUGS (1)
  1. ATORSTAT [Suspect]
     Active Substance: ATORVASTATIN CALCIUM
     Indication: ACUTE CORONARY SYNDROME
     Route: 048
     Dates: start: 2017, end: 2017

REACTIONS (2)
  - Drug-induced liver injury [Recovered/Resolved]
  - Transaminases increased [Recovered/Resolved]

NARRATIVE: CASE EVENT DATE: 2017
